FAERS Safety Report 6028990-4 (Version None)
Quarter: 2009Q1

REPORT INFORMATION
  Report Type: 
  Country: None (occurrence: None)
  Receive Date: 20090106
  Receipt Date: 20081222
  Transmission Date: 20090719
  Serious: Yes (Hospitalization)
  Sender: FDA-Public Use
  Company Number: PL-AMGEN-UK326630

PATIENT
  Age: 23 Year
  Sex: Female
  Weight: 45.8 kg

DRUGS (1)
  1. NEULASTA [Suspect]
     Indication: NEUTROPENIA
     Route: 058
     Dates: start: 20061201, end: 20070101

REACTIONS (5)
  - ACUTE FEBRILE NEUTROPHILIC DERMATOSIS [None]
  - CACHEXIA [None]
  - HEPATOSPLENOMEGALY [None]
  - INTESTINAL FISTULA [None]
  - INTESTINAL OBSTRUCTION [None]
